FAERS Safety Report 16085276 (Version 2)
Quarter: 2019Q1

REPORT INFORMATION
  Report Type: Spontaneous
  Country: DE (occurrence: DE)
  Receive Date: 20190318
  Receipt Date: 20190325
  Transmission Date: 20190418
  Serious: No
  Sender: FDA-Public Use
  Company Number: PHHY2019DE059896

PATIENT
  Age: 42 Year
  Sex: Female
  Weight: 74.5 kg

DRUGS (8)
  1. DOCETAXEL. [Suspect]
     Active Substance: DOCETAXEL
     Indication: LUNG ADENOCARCINOMA
     Dosage: 75 MG/M2, QD (75 MG/M2 BSA, FORMULATION: LIQUID)
     Route: 042
     Dates: start: 20181107
  2. VARGATEF [Suspect]
     Active Substance: NINTEDANIB
     Dosage: 400 MG, QD
     Route: 048
     Dates: start: 20181129
  3. PLEGRIDY [Concomitant]
     Active Substance: PEGINTERFERON BETA-1A
     Indication: DRUG THERAPY
     Dosage: 125 UG, QD
     Route: 058
  4. DOCETAXEL. [Suspect]
     Active Substance: DOCETAXEL
     Dosage: 75 MG/M2, QD (75 MG/M2 BSA, FORMULATION: LIQUID )
     Route: 042
     Dates: start: 20181128
  5. VARGATEF [Suspect]
     Active Substance: NINTEDANIB
     Dosage: 400 MG, QD
     Route: 048
     Dates: start: 20181220
  6. VARGATEF [Suspect]
     Active Substance: NINTEDANIB
     Dosage: 400 MG, QD
     Route: 048
     Dates: start: 20190110
  7. VARGATEF [Suspect]
     Active Substance: NINTEDANIB
     Dosage: 400 MG, QD
     Route: 048
     Dates: start: 20181108
  8. VARGATEF [Suspect]
     Active Substance: NINTEDANIB
     Indication: LUNG ADENOCARCINOMA
     Dosage: 400 MG, QD
     Route: 048
     Dates: start: 20181107

REACTIONS (11)
  - Alanine aminotransferase increased [Not Recovered/Not Resolved]
  - Weight decreased [Not Recovered/Not Resolved]
  - Nausea [Not Recovered/Not Resolved]
  - Alanine aminotransferase increased [Not Recovered/Not Resolved]
  - Neutrophil count decreased [Recovered/Resolved]
  - Neutrophil count decreased [Recovered/Resolved]
  - Neutrophil count decreased [Recovered/Resolved]
  - Aspartate aminotransferase increased [Recovered/Resolved]
  - Pain [Not Recovered/Not Resolved]
  - Neutrophil count decreased [Recovered/Resolved]
  - Vomiting [Recovered/Resolved]

NARRATIVE: CASE EVENT DATE: 20181114
